FAERS Safety Report 9740221 (Version 1)
Quarter: 2013Q4

REPORT INFORMATION
  Report Type: Spontaneous
  Country: CH (occurrence: CH)
  Receive Date: 20131209
  Receipt Date: 20131209
  Transmission Date: 20140711
  Serious: Yes (Death)
  Sender: FDA-Public Use
  Company Number: CH-CUBIST PHARMACEUTICAL, INC.-2013CBST001275

PATIENT
  Sex: 0

DRUGS (10)
  1. CUBICIN [Suspect]
     Indication: ENTEROCOCCAL INFECTION
     Dosage: UNK UNK, UNK
     Route: 042
  2. CUBICIN [Suspect]
     Indication: STAPHYLOCOCCAL INFECTION
  3. CUBICIN [Suspect]
     Indication: OSTEOMYELITIS
  4. CUBICIN [Suspect]
     Indication: OFF LABEL USE
  5. CIPROFLOXACIN [Suspect]
     Indication: OSTEOMYELITIS
     Dosage: UNK UNK, UNK
     Route: 042
  6. CIPROFLOXACIN [Suspect]
     Indication: ENTEROCOCCAL INFECTION
  7. CIPROFLOXACIN [Suspect]
     Indication: STAPHYLOCOCCAL INFECTION
  8. MEROPENEM [Suspect]
     Indication: OSTEOMYELITIS
     Route: 042
  9. MEROPENEM [Suspect]
     Indication: ENTEROCOCCAL INFECTION
  10. MEROPENEM [Suspect]
     Indication: STAPHYLOCOCCAL INFECTION

REACTIONS (1)
  - Urosepsis [Fatal]
